FAERS Safety Report 8549815-9 (Version None)
Quarter: 2012Q3

REPORT INFORMATION
  Report Type: 
  Country: None (occurrence: None)
  Receive Date: 20120730
  Receipt Date: 20120720
  Transmission Date: 20120928
  Serious: Yes (Other)
  Sender: FDA-Public Use
  Company Number: CA-ASTRAZENECA-2012SE51748

PATIENT
  Age: 40 Year
  Sex: Male

DRUGS (3)
  1. SEROQUEL [Suspect]
     Route: 048
  2. COCAINE [Suspect]
  3. METHAMPHETAMINE HYDROCHLORIDE [Suspect]

REACTIONS (3)
  - DEPRESSION [None]
  - BACK INJURY [None]
  - IMPAIRED DRIVING ABILITY [None]
